APPROVED DRUG PRODUCT: TRYMEX
Active Ingredient: TRIAMCINOLONE ACETONIDE
Strength: 0.1%
Dosage Form/Route: OINTMENT;TOPICAL
Application: A088691 | Product #001
Applicant: SAVAGE LABORATORIES INC DIV ALTANA INC
Approved: Aug 2, 1984 | RLD: No | RS: No | Type: DISCN